FAERS Safety Report 19234007 (Version 1)
Quarter: 2021Q2

REPORT INFORMATION
  Report Type: Report from Study
  Country: GB (occurrence: GB)
  Receive Date: 20210508
  Receipt Date: 20210508
  Transmission Date: 20210717
  Serious: Yes (Other)
  Sender: FDA-Public Use
  Company Number: GB-UCBSA-2021020634

PATIENT
  Sex: Female

DRUGS (1)
  1. CERTOLIZUMAB PEGOL PSA AUTOCLICKS [Suspect]
     Active Substance: CERTOLIZUMAB PEGOL
     Indication: PSORIASIS
     Dosage: 200 MILLIGRAM, EV 2 WEEKS(QOW)
     Route: 058
     Dates: start: 20200723

REACTIONS (2)
  - Mental impairment [Not Recovered/Not Resolved]
  - Psoriasis [Not Recovered/Not Resolved]
